FAERS Safety Report 14782665 (Version 1)
Quarter: 2018Q2

REPORT INFORMATION
  Report Type: Report from Study
  Country: AU (occurrence: AU)
  Receive Date: 20180420
  Receipt Date: 20180420
  Transmission Date: 20180711
  Serious: Yes (Hospitalization)
  Sender: FDA-Public Use
  Company Number: AU-ASTRAZENECA-2017SF30639

PATIENT
  Age: 25000 Day
  Sex: Male
  Weight: 101 kg

DRUGS (1)
  1. DURVALUMAB. [Suspect]
     Active Substance: DURVALUMAB
     Indication: MESOTHELIOMA
     Dosage: 1125 MG DAY 1 ONLY OF 21 DAY CYCLE
     Route: 042
     Dates: start: 20170620, end: 20171212

REACTIONS (1)
  - Synovitis [Recovered/Resolved]

NARRATIVE: CASE EVENT DATE: 20171215
